FAERS Safety Report 20605308 (Version 2)
Quarter: 2022Q2

REPORT INFORMATION
  Report Type: Spontaneous
  Country: US (occurrence: US)
  Receive Date: 20220317
  Receipt Date: 20220411
  Transmission Date: 20220720
  Serious: No
  Sender: FDA-Public Use
  Company Number: US-ALK-ABELLO A/S-2022AA000788

PATIENT

DRUGS (1)
  1. JUNIPERUS ASHEI POLLEN [Suspect]
     Active Substance: JUNIPERUS ASHEI POLLEN
     Indication: Product used for unknown indication

REACTIONS (3)
  - Injection site pain [Recovered/Resolved]
  - Liquid product physical issue [Unknown]
  - Product colour issue [Unknown]
